FAERS Safety Report 7930477-6 (Version None)
Quarter: 2011Q4

REPORT INFORMATION
  Report Type: 
  Country: None (occurrence: None)
  Receive Date: 20111117
  Receipt Date: 20111117
  Transmission Date: 20120403
  Serious: Yes (Other)
  Sender: FDA-Public Use
  Company Number: None

PATIENT
  Age: 61 Year
  Sex: Female
  Weight: 68.0396 kg

DRUGS (1)
  1. SURMONTIL [Suspect]
     Indication: DEPRESSION
     Dosage: 75MG. - 1X DAY
     Dates: start: 20060101, end: 20110101

REACTIONS (5)
  - TREMOR [None]
  - HYPERHIDROSIS [None]
  - CHILLS [None]
  - WITHDRAWAL SYNDROME [None]
  - INSOMNIA [None]
